FAERS Safety Report 8154626-2 (Version None)
Quarter: 2012Q1

REPORT INFORMATION
  Report Type: 
  Country: None (occurrence: None)
  Receive Date: 20120221
  Receipt Date: 20120209
  Transmission Date: 20120608
  Serious: Yes (Other)
  Sender: FDA-Public Use
  Company Number: PHHY2012BR011972

PATIENT
  Sex: Male

DRUGS (7)
  1. DIAMICRON MR [Concomitant]
     Dosage: 30 MG, UNK
  2. GALVUS MET COMBIPACK [Suspect]
     Dosage: 1 DF(850/50MG) DAILY
  3. LOSARTAN POTASSIUM [Suspect]
     Dosage: 50 MG, UNK
     Route: 048
  4. ATENOLOL [Suspect]
     Dosage: 50 MG, UNK
     Route: 048
  5. ASPIRIN [Concomitant]
     Dosage: 100 MG, UNK
  6. METFORMIN HCL [Concomitant]
     Dosage: 750 MG, UNK
  7. SIMVASTATIN [Suspect]
     Dosage: 40 MG, UNK
     Route: 048

REACTIONS (1)
  - DIABETES MELLITUS [None]
